FAERS Safety Report 4461349-X (Version None)
Quarter: 2004Q3

REPORT INFORMATION
  Report Type: 
  Country: None (occurrence: None)
  Receive Date: 20040928
  Receipt Date: 20040921
  Transmission Date: 20050211
  Serious: Yes (Disabling, Other)
  Sender: FDA-Public Use
  Company Number: GB-BRISTOL-MYERS SQUIBB COMPANY-12713368

PATIENT
  Age: 55 Year
  Sex: Female
  Weight: 56 kg

DRUGS (5)
  1. PACLITAXEL [Suspect]
     Indication: BREAST CANCER
     Route: 042
     Dates: start: 20040308, end: 20040308
  2. CYCLOPHOSPHAMIDE [Suspect]
     Indication: BREAST CANCER
     Dates: start: 20031210, end: 20031210
  3. EPIRUBICIN [Suspect]
     Indication: BREAST CANCER
     Dates: start: 20031210, end: 20031210
  4. TAMOXIFEN CITRATE [Concomitant]
     Route: 048
     Dates: start: 20040615
  5. ZOPICLONE [Concomitant]
     Route: 048
     Dates: start: 20040101

REACTIONS (4)
  - DYSPNOEA EXACERBATED [None]
  - PCO2 ABNORMAL [None]
  - POLYCYTHAEMIA [None]
  - REVERSIBLE AIRWAYS OBSTRUCTION [None]
